FAERS Safety Report 8004116-2 (Version None)
Quarter: 2011Q4

REPORT INFORMATION
  Report Type: 
  Country: None (occurrence: None)
  Receive Date: 20111222
  Receipt Date: 20111213
  Transmission Date: 20120403
  Serious: Yes (Hospitalization, Other)
  Sender: FDA-Public Use
  Company Number: US-ASTRAZENECA-2011SE64442

PATIENT
  Age: 61 Year
  Sex: Female

DRUGS (1)
  1. ARIMIDEX [Suspect]
     Route: 048

REACTIONS (6)
  - NEOPLASM MALIGNANT [None]
  - URTICARIA [None]
  - HYPERTENSION [None]
  - ADVERSE EVENT [None]
  - RASH PRURITIC [None]
  - DRUG INTOLERANCE [None]
